FAERS Safety Report 6542437-0 (Version None)
Quarter: 2010Q1

REPORT INFORMATION
  Report Type: 
  Country: None (occurrence: None)
  Receive Date: 20100119
  Receipt Date: 20100108
  Transmission Date: 20100710
  Serious: Yes (Other)
  Sender: FDA-Public Use
  Company Number: US-JNJFOC-20100104502

PATIENT
  Age: 77 Year
  Sex: Male
  Weight: 61.24 kg

DRUGS (5)
  1. TYLENOL (CAPLET) [Suspect]
     Route: 048
  2. TYLENOL (CAPLET) [Suspect]
     Indication: ARTHRITIS
     Route: 048
  3. ZOLOFT [Concomitant]
  4. LORAZEPAM [Concomitant]
     Dosage: UP TO 5 TIMES/DAY
  5. RESTORIL [Concomitant]

REACTIONS (4)
  - CONSTIPATION [None]
  - DIARRHOEA [None]
  - GASTRITIS [None]
  - PRODUCT QUALITY ISSUE [None]
